FAERS Safety Report 4416586-7 (Version None)
Quarter: 2004Q2

REPORT INFORMATION
  Report Type: 
  Country: None (occurrence: None)
  Receive Date: 20040630
  Receipt Date: 20040510
  Transmission Date: 20050107
  Serious: Yes (Hospitalization)
  Sender: FDA-Public Use
  Company Number: 04P-163-0260152-00

PATIENT
  Age: 73 Year
  Sex: Male

DRUGS (8)
  1. HUMIRA [Suspect]
     Indication: RHEUMATOID ARTHRITIS
     Dosage: 40 MG, 1 IN 2 WK, SUBCUTANEOUS
     Route: 058
     Dates: start: 20030701
  2. ISOSORB [Concomitant]
  3. CARVEDILOL [Concomitant]
  4. LEVOTHYROXINE SODIUM [Concomitant]
  5. LISINOPRIL [Concomitant]
  6. ATORVASTATIN [Concomitant]
  7. ASPIRIN [Concomitant]
  8. LEFLUNOMIDE [Concomitant]

REACTIONS (1)
  - MYOCARDIAL INFARCTION [None]
